FAERS Safety Report 8115141-5 (Version None)
Quarter: 2012Q1

REPORT INFORMATION
  Report Type: 
  Country: None (occurrence: None)
  Receive Date: 20120206
  Receipt Date: 20111118
  Transmission Date: 20120608
  Serious: No
  Sender: FDA-Public Use
  Company Number: US-GLAXOSMITHKLINE-A0953913A

PATIENT
  Sex: Male

DRUGS (1)
  1. VELTIN [Suspect]
     Indication: ACNE
     Dosage: 1APP SINGLE DOSE
     Route: 061

REACTIONS (1)
  - DRY SKIN [None]
